FAERS Safety Report 18284266 (Version 6)
Quarter: 2020Q4

REPORT INFORMATION
  Report Type: Spontaneous
  Country: ES (occurrence: ES)
  Receive Date: 20200918
  Receipt Date: 20201204
  Transmission Date: 20210113
  Serious: Yes (Other)
  Sender: FDA-Public Use
  Company Number: ES-BRISTOL-MYERS SQUIBB COMPANY-BMS-2020-074545

PATIENT
  Age: 65 Year
  Sex: Male
  Weight: 80 kg

DRUGS (7)
  1. PREDNISONE. [Concomitant]
     Active Substance: PREDNISONE
     Indication: PNEUMONITIS
     Dosage: 2.5 MILLIGRAM, QD
     Route: 048
     Dates: start: 20191101
  2. DIAZEPAM. [Concomitant]
     Active Substance: DIAZEPAM
     Indication: INSOMNIA
     Dosage: 5 MILLIGRAM, QD, AT NIGHT
     Route: 048
     Dates: start: 20200101
  3. OPDIVO [Suspect]
     Active Substance: NIVOLUMAB
     Indication: MALIGNANT MELANOMA
     Dosage: 75 MILLIGRAM, ENDOVENOUS
     Route: 050
     Dates: start: 20200901, end: 20200901
  4. YERVOY [Suspect]
     Active Substance: IPILIMUMAB
     Indication: MALIGNANT MELANOMA
     Dosage: 220 MILLIGRAM, ENDOVENOUS
     Route: 050
     Dates: start: 20200901, end: 20200901
  5. ESOMEPRAZOLE. [Concomitant]
     Active Substance: ESOMEPRAZOLE MAGNESIUM
     Indication: GASTRITIS
     Dosage: 40 MILLIGRAM, QD
     Route: 048
     Dates: start: 20200901
  6. YERVOY [Suspect]
     Active Substance: IPILIMUMAB
     Dosage: 220 MILLIGRAM PE DAY, TOTAL
     Route: 041
     Dates: start: 20200901, end: 20200901
  7. OPDIVO [Suspect]
     Active Substance: NIVOLUMAB
     Dosage: 75 MILLIGRAM PER DAY, TOTAL
     Route: 041
     Dates: start: 20200901, end: 20200901

REACTIONS (2)
  - Facial paralysis [Not Recovered/Not Resolved]
  - Prescribed underdose [Unknown]

NARRATIVE: CASE EVENT DATE: 20200903
